FAERS Safety Report 22991758 (Version 4)
Quarter: 2024Q1

REPORT INFORMATION
  Report Type: Report from Study
  Country: FR (occurrence: FR)
  Receive Date: 20230927
  Receipt Date: 20240206
  Transmission Date: 20240410
  Serious: Yes (Other)
  Sender: FDA-Public Use
  Company Number: FR-AstraZeneca-2023A189507

PATIENT
  Sex: Male
  Weight: 66 kg

DRUGS (6)
  1. GEMCITABINE [Suspect]
     Active Substance: GEMCITABINE
     Indication: Metastases to biliary tract
     Dosage: UNK
     Route: 065
     Dates: start: 20230724, end: 20230724
  2. GEMCITABINE [Suspect]
     Active Substance: GEMCITABINE
     Indication: Chemotherapy
     Dosage: UNK
     Route: 065
     Dates: start: 20230814, end: 20230814
  3. CISPLATIN [Suspect]
     Active Substance: CISPLATIN
     Indication: Metastases to biliary tract
     Dosage: UNK
     Route: 065
     Dates: start: 20230724, end: 20230724
  4. CISPLATIN [Suspect]
     Active Substance: CISPLATIN
     Indication: Chemotherapy
     Dosage: UNK
     Route: 065
     Dates: start: 20230814, end: 20230814
  5. IMFINZI [Suspect]
     Active Substance: DURVALUMAB
     Indication: Biliary tract disorder
     Dosage: 1500 MILLIGRAM, Q3W
     Route: 042
     Dates: start: 20230724
  6. IMFINZI [Suspect]
     Active Substance: DURVALUMAB
     Indication: Metastases to biliary tract

REACTIONS (7)
  - Toxicity to various agents [Recovered/Resolved]
  - Deep vein thrombosis [Not Recovered/Not Resolved]
  - Thrombocytopenia [Recovered/Resolved]
  - Renal colic [Unknown]
  - Adverse event [Recovered/Resolved]
  - Infection [Unknown]
  - Diarrhoea [Recovered/Resolved]
